FAERS Safety Report 21383349 (Version 1)
Quarter: 2022Q3

REPORT INFORMATION
  Report Type: Spontaneous
  Country: CN (occurrence: None)
  Receive Date: 20220927
  Receipt Date: 20220927
  Transmission Date: 20221026
  Serious: Yes (Death, Other)
  Sender: FDA-Public Use
  Company Number: CN-ROCHE-3185958

PATIENT
  Age: 62 Year
  Sex: Male

DRUGS (11)
  1. CAPECITABINE [Suspect]
     Active Substance: CAPECITABINE
     Indication: Colon cancer
     Route: 048
     Dates: start: 20220805
  2. BEVACIZUMAB [Suspect]
     Active Substance: BEVACIZUMAB
     Indication: Colon cancer
     Route: 065
     Dates: start: 20220805
  3. OXALIPLATIN [Concomitant]
     Active Substance: OXALIPLATIN
     Indication: Colon cancer
     Dosage: 23-APR-2022, 10-MAY-2022 AND 25-MAY-2022
  4. OXALIPLATIN [Concomitant]
     Active Substance: OXALIPLATIN
     Dates: start: 20220805
  5. LEUCOVORIN CALCIUM [Concomitant]
     Active Substance: LEUCOVORIN CALCIUM
     Indication: Colon cancer
     Dosage: 23-APR-2022, 10-MAY-2022 AND 25-MAY-2022
  6. FLUOROURACIL [Concomitant]
     Active Substance: FLUOROURACIL
     Indication: Colon cancer
     Dosage: 23-APR-2022, 10-MAY-2022 AND 25-MAY-2022
  7. CETUXIMAB [Concomitant]
     Active Substance: CETUXIMAB
     Indication: Colon cancer
     Dosage: 23-APR-2022, 10-MAY-2022 AND 25-MAY-2022
  8. ENDOSTATIN [Concomitant]
     Active Substance: ENDOSTATIN
     Indication: Pleural effusion
     Dosage: RECOMBINANT HUMAN ENDOSTATIN INJECTION AND CISPLATIN,
  9. ENDOSTATIN [Concomitant]
     Active Substance: ENDOSTATIN
     Dosage: 28-JUL-2022, 03-AUG-2022 AND 08-AUG-2022
  10. ENDOSTATIN [Concomitant]
     Active Substance: ENDOSTATIN
     Dates: start: 20220907
  11. CISPLATIN [Concomitant]
     Active Substance: CISPLATIN
     Indication: Pleural effusion
     Dosage: RECOMBINANT HUMAN ENDOSTATIN INJECTION AND CISPLATIN

REACTIONS (5)
  - Death [Fatal]
  - Neoplasm malignant [Unknown]
  - Mouth ulceration [Unknown]
  - Sputum increased [Unknown]
  - Tachypnoea [Recovering/Resolving]

NARRATIVE: CASE EVENT DATE: 20220912
